FAERS Safety Report 10660096 (Version 1)
Quarter: 2014Q4

REPORT INFORMATION
  Report Type: Spontaneous
  Country: US (occurrence: US)
  Receive Date: 20141217
  Receipt Date: 20141217
  Transmission Date: 20150529
  Serious: No
  Sender: FDA-Public Use
  Company Number: US-SA-2014SA013992

PATIENT
  Age: 82 Year
  Sex: Female

DRUGS (1)
  1. DOCETAXEL WINTHROP [Suspect]
     Active Substance: DOCETAXEL
     Indication: BREAST CANCER
     Route: 065

REACTIONS (2)
  - Infusion site erythema [Recovered/Resolved]
  - Flushing [Recovered/Resolved]
